FAERS Safety Report 20866269 (Version 1)
Quarter: 2022Q2

REPORT INFORMATION
  Report Type: Spontaneous
  Country: IT (occurrence: IT)
  Receive Date: 20220524
  Receipt Date: 20220524
  Transmission Date: 20220721
  Serious: Yes (Hospitalization)
  Sender: FDA-Public Use
  Company Number: IT-Inventia-000551

PATIENT
  Age: 16 Year
  Sex: Female

DRUGS (3)
  1. LANSOPRAZOLE [Suspect]
     Active Substance: LANSOPRAZOLE
     Indication: Gastritis erosive
     Dosage: 30 MG AM AND 15 MG PM
     Route: 048
  2. LITHIUM [Concomitant]
     Active Substance: LITHIUM
     Indication: Cognitive disorder
     Dosage: 300 MG THREE TIMES A DAY
  3. PERICIAZINE [Concomitant]
     Active Substance: PERICIAZINE
     Indication: Sleep disorder
     Dosage: 10 MG AT BED TIME

REACTIONS (2)
  - Depression [Recovered/Resolved]
  - Catatonia [Recovered/Resolved]
